FAERS Safety Report 7745162-3 (Version None)
Quarter: 2011Q3

REPORT INFORMATION
  Report Type: 
  Country: None (occurrence: None)
  Receive Date: 20110907
  Receipt Date: 20110824
  Transmission Date: 20111222
  Serious: Yes (Other)
  Sender: FDA-Public Use
  Company Number: 2011AP001752

PATIENT
  Age: 56 Year
  Sex: Female

DRUGS (2)
  1. CALCITONIN SALMON [Suspect]
     Indication: PRODUCT USED FOR UNKNOWN INDICATION
     Dosage: 3.7 MG, QD, NAS
     Route: 045
     Dates: start: 20090101, end: 20110701
  2. LANSLOPRAZOLE HYDROCHLOROTHIAZIDE/LISINOPRIL [Concomitant]

REACTIONS (1)
  - MULTIFOCAL MOTOR NEUROPATHY [None]
